FAERS Safety Report 6124720-6 (Version None)
Quarter: 2009Q1

REPORT INFORMATION
  Report Type: 
  Country: None (occurrence: None)
  Receive Date: 20090319
  Receipt Date: 20090317
  Transmission Date: 20090719
  Serious: Yes (Death, Hospitalization)
  Sender: FDA-Public Use
  Company Number: IT-SANOFI-SYNTHELABO-F01200900268

PATIENT
  Sex: Male

DRUGS (6)
  1. BENAZEPRIL HYDROCHLORIDE [Concomitant]
     Dates: start: 19940101, end: 20050811
  2. BEVACIZUMAB [Suspect]
     Dosage: 420 MG
     Route: 042
     Dates: start: 20050711, end: 20050711
  3. FLUOROURACIL [Suspect]
     Dosage: 775 MG 2 X PER 14 DAYS 775 MG
     Dates: start: 20050711, end: 20050711
  4. FOLINIC ACID [Suspect]
     Dosage: D 1 AND D2 EVERY 14 DAYS 190 MG
     Route: 042
     Dates: start: 20050711, end: 20050711
  5. OXALIPLATIN [Suspect]
     Indication: COLON CANCER
     Dosage: 165 MG
     Route: 042
     Dates: start: 20050711, end: 20050711
  6. REVIVAN [Concomitant]
     Dates: start: 20050805, end: 20050811

REACTIONS (2)
  - ILEAL PERFORATION [None]
  - SHOCK [None]
